FAERS Safety Report 7733961-3 (Version None)
Quarter: 2011Q3

REPORT INFORMATION
  Report Type: 
  Country: None (occurrence: None)
  Receive Date: 20110907
  Receipt Date: 20110902
  Transmission Date: 20111222
  Serious: Yes (Other)
  Sender: FDA-Public Use
  Company Number: BR-ABBOTT-11P-020-0851116-00

PATIENT
  Sex: Male
  Weight: 76 kg

DRUGS (5)
  1. HUMIRA [Suspect]
     Indication: CROHN'S DISEASE
     Dosage: ONCE
     Route: 058
  2. HUMIRA [Suspect]
     Route: 058
  3. HUMIRA [Suspect]
     Dosage: 2 ONCE
     Route: 058
  4. MESALAMINE [Concomitant]
     Indication: PROPHYLAXIS
  5. MESALAMINE [Concomitant]
     Indication: NEOPLASM MALIGNANT
     Route: 048

REACTIONS (1)
  - COLONIC STENOSIS [None]
